FAERS Safety Report 8762772 (Version 1)
Quarter: 2012Q4

REPORT INFORMATION
  Report Type: 
  Country: CA (occurrence: CA)
  Receive Date: 20120828
  Receipt Date: 20120828
  Transmission Date: 20130627
  Serious: Yes (Other)
  Sender: FDA-Public Use
  Company Number: CA-JNJFOC-20120600627

PATIENT
  Sex: Male
  Weight: 104 kg

DRUGS (6)
  1. REMICADE [Suspect]
     Indication: CROHN^S DISEASE
     Route: 042
     Dates: start: 20100429
  2. IMURAN [Concomitant]
     Route: 065
  3. SYMBICORT [Concomitant]
     Route: 065
  4. SOLU-CORTEF [Concomitant]
     Indication: PREMEDICATION
     Route: 042
  5. NADOLOL [Concomitant]
     Route: 048
  6. VENTOLIN [Concomitant]
     Route: 065

REACTIONS (2)
  - Liver injury [Unknown]
  - Leiomyoma [Unknown]
